FAERS Safety Report 24161019 (Version 2)
Quarter: 2024Q3

REPORT INFORMATION
  Report Type: Spontaneous
  Country: JP (occurrence: JP)
  Receive Date: 20240801
  Receipt Date: 20240808
  Transmission Date: 20241017
  Serious: Yes (Other)
  Sender: ALK-ABELLO
  Company Number: JP-ALK-ABELLO A/S-2024AA002984

PATIENT

DRUGS (2)
  1. MITICURE [Suspect]
     Active Substance: DERMATOPHAGOIDES FARINAE\DERMATOPHAGOIDES PTERONYSSINUS
     Indication: Product used for unknown indication
     Dosage: 10000 JAU
     Route: 060
  2. CRYPTOMERIA JAPONICA POLLEN [Suspect]
     Active Substance: CRYPTOMERIA JAPONICA POLLEN
     Indication: Product used for unknown indication
     Dosage: 5000 JAU
     Route: 060

REACTIONS (2)
  - Gastrointestinal oedema [Unknown]
  - Back pain [Unknown]
